FAERS Safety Report 9861214 (Version 1)
Quarter: 2014Q1

REPORT INFORMATION
  Report Type: Report from Study
  Country: AR (occurrence: AR)
  Receive Date: 20140202
  Receipt Date: 20140202
  Transmission Date: 20141002
  Serious: Yes (Other)
  Sender: FDA-Public Use
  Company Number: AR-BRISTOL-MYERS SQUIBB COMPANY-20086682

PATIENT
  Age: 79 Year
  Sex: Male

DRUGS (1)
  1. YERVOY [Suspect]
     Indication: MALIGNANT MELANOMA
     Dosage: INTERRUPTED?JAN-2014?1 DF=4 UNITS 50 MG
     Dates: start: 20131114

REACTIONS (2)
  - Diarrhoea [Recovering/Resolving]
  - Oedema peripheral [Recovering/Resolving]
